FAERS Safety Report 6156589-8 (Version None)
Quarter: 2009Q2

REPORT INFORMATION
  Report Type: 
  Country: None (occurrence: None)
  Receive Date: 20090416
  Receipt Date: 20070321
  Transmission Date: 20091009
  Serious: Yes (Hospitalization, Other)
  Sender: FDA-Public Use
  Company Number: US-BAYER-US-2007-009539

PATIENT
  Age: 42 Year
  Sex: Female
  Weight: 79 kg

DRUGS (9)
  1. CAMPATH [Suspect]
     Indication: RELAPSING-REMITTING MULTIPLE SCLEROSIS
     Dosage: UNIT DOSE: 24 MG
     Route: 042
     Dates: start: 20040322, end: 20040326
  2. CAMPATH [Suspect]
     Dosage: UNIT DOSE: 24 MG
     Route: 042
     Dates: start: 20050322, end: 20050324
  3. SYNTHROID [Concomitant]
     Dosage: UNIT DOSE: 100 ?G
     Route: 048
     Dates: start: 20070213
  4. PROVIGIL [Concomitant]
     Dosage: 100 MG, UNK
     Route: 048
  5. MIDRIN [Concomitant]
     Dosage: UNK, AS REQ'D
     Route: 048
  6. BC POWDER [Concomitant]
     Dosage: UNK, AS REQ'D
     Route: 048
  7. INDERAL LA [Concomitant]
  8. LORAZEPAM [Concomitant]
  9. PRILOSEC [Concomitant]

REACTIONS (5)
  - ENDOMETRIAL CANCER [None]
  - HYPOTHYROIDIC GOITRE [None]
  - OVARIAN EPITHELIAL CANCER [None]
  - THYROID CANCER [None]
  - THYROIDECTOMY [None]
